FAERS Safety Report 8247792-1 (Version None)
Quarter: 2012Q1

REPORT INFORMATION
  Report Type: 
  Country: None (occurrence: None)
  Receive Date: 20120330
  Receipt Date: 20120326
  Transmission Date: 20120608
  Serious: Yes (Life-Threatening, Hospitalization, Other)
  Sender: FDA-Public Use
  Company Number: US-ELI_LILLY_AND_COMPANY-US201203007903

PATIENT
  Sex: Male

DRUGS (6)
  1. LANTUS [Concomitant]
     Dosage: 30 U, EACH EVENING
  2. BYETTA [Concomitant]
  3. HUMULIN N [Suspect]
     Indication: DIABETES MELLITUS
     Dosage: UNK
     Dates: start: 20030101
  4. GLIPIRIDE [Concomitant]
     Dosage: 4 MG, UNKNOWN
  5. METFORMIN HCL [Concomitant]
     Dosage: 500 MG, BID
  6. METFORMIN HCL [Concomitant]
     Dosage: 500 MG, QD
     Dates: start: 20040101

REACTIONS (3)
  - MYOCARDIAL INFARCTION [None]
  - SOMNOLENCE [None]
  - FEELING ABNORMAL [None]
